FAERS Safety Report 5670524-8 (Version None)
Quarter: 2008Q1

REPORT INFORMATION
  Report Type: 
  Country: None (occurrence: None)
  Receive Date: 20080318
  Receipt Date: 20080311
  Transmission Date: 20080703
  Serious: Yes (Other)
  Sender: FDA-Public Use
  Company Number: PHHY2008JP03082

PATIENT

DRUGS (1)
  1. COMTAN [Suspect]
     Indication: DRUG EFFECT DECREASED
     Dosage: 300 MG/DAY
     Route: 048
     Dates: start: 20071227, end: 20080221

REACTIONS (1)
  - BLOOD CREATINE PHOSPHOKINASE INCREASED [None]
